FAERS Safety Report 18965484 (Version 1)
Quarter: 2021Q1

REPORT INFORMATION
  Report Type: Spontaneous
  Country: JP (occurrence: JP)
  Receive Date: 20210303
  Receipt Date: 20210303
  Transmission Date: 20210420
  Serious: Yes (Other)
  Sender: FDA-Public Use
  Company Number: JP-ELI_LILLY_AND_COMPANY-JP202102013277

PATIENT
  Age: 70 Year
  Sex: Male

DRUGS (2)
  1. ZALUTIA 2.5MG [Suspect]
     Active Substance: TADALAFIL
     Indication: POLLAKIURIA
     Dosage: 5 MG, DAILY
     Route: 048
     Dates: start: 20201028, end: 20201028
  2. SILODOSIN. [Concomitant]
     Active Substance: SILODOSIN
     Indication: HYPERTONIC BLADDER
     Dosage: 8 MG, UNKNOWN
     Route: 065
     Dates: start: 20201028, end: 20201125

REACTIONS (3)
  - Blood pressure decreased [Recovered/Resolved]
  - Loss of consciousness [Recovered/Resolved]
  - Off label use [Unknown]

NARRATIVE: CASE EVENT DATE: 20201028
